FAERS Safety Report 5646739-1 (Version None)
Quarter: 2008Q1

REPORT INFORMATION
  Report Type: 
  Country: None (occurrence: None)
  Receive Date: 20080303
  Receipt Date: 20080220
  Transmission Date: 20080703
  Serious: Yes (Hospitalization, Other)
  Sender: FDA-Public Use
  Company Number: JP-BRISTOL-MYERS SQUIBB COMPANY-14094536

PATIENT
  Age: 60 Year
  Sex: Male

DRUGS (5)
  1. CARBIDOPA + LEVODOPA [Suspect]
     Indication: PARKINSON'S DISEASE
     Dosage: INCREASED THE DOSE FROM 300 MG/DAY TO 600 MG/DAY.
     Route: 048
  2. AMANTADINE HCL [Concomitant]
  3. CABERGOLINE [Concomitant]
  4. SEROQUEL [Concomitant]
  5. ARTANE [Concomitant]

REACTIONS (3)
  - DOPAMINE DYSREGULATION SYNDROME [None]
  - INTENTIONAL OVERDOSE [None]
  - RETINAL DETACHMENT [None]
